FAERS Safety Report 4727227-3 (Version None)
Quarter: 2005Q3

REPORT INFORMATION
  Report Type: 
  Country: None (occurrence: None)
  Receive Date: 20050726
  Receipt Date: 20031229
  Transmission Date: 20060218
  Serious: Yes (Life-Threatening)
  Sender: FDA-Public Use
  Company Number: 04NOR0036 82

PATIENT
  Age: 72 Year
  Sex: Female

DRUGS (9)
  1. AGGRASTAT [Suspect]
     Indication: CORONARY ANGIOPLASTY
     Dates: start: 20031123, end: 20031123
  2. COZAAR [Concomitant]
  3. ASPIRIN [Concomitant]
  4. DIPYRIDAMOLE [Concomitant]
  5. ATROVASTATIN CALCIUM [Concomitant]
  6. ENOXAPARIN SODIUM [Concomitant]
  7. FELODIPINE [Concomitant]
  8. FUROSEMIDE [Concomitant]
  9. SOTALOL HCL [Concomitant]

REACTIONS (3)
  - INFUSION RELATED REACTION [None]
  - PYREXIA [None]
  - THROMBOCYTOPENIA [None]
